FAERS Safety Report 5329509-3 (Version None)
Quarter: 2007Q2

REPORT INFORMATION
  Report Type: 
  Country: None (occurrence: None)
  Receive Date: 20070223
  Receipt Date: 20060320
  Transmission Date: 20071010
  Serious: Yes (Hospitalization, Disabling, Other)
  Sender: FDA-Public Use
  Company Number: WAES 0603USA03117

PATIENT
  Age: 76 Year
  Sex: Female
  Weight: 61.2356 kg

DRUGS (7)
  1. ZOCOR [Suspect]
     Indication: HYPERLIPIDAEMIA
     Dosage: 80 MG/DAILY/PO
     Route: 048
     Dates: start: 20051122, end: 20060224
  2. DETROL LA [Concomitant]
  3. FOSAMAX [Concomitant]
  4. PREVACID [Concomitant]
  5. ZETIA [Concomitant]
  6. ASCORBIC ACID [Concomitant]
  7. MULTI-VITAMINS [Concomitant]

REACTIONS (7)
  - HEPATITIS [None]
  - MYOPATHY [None]
  - PNEUMONIA [None]
  - RENAL DISORDER [None]
  - RHABDOMYOLYSIS [None]
  - URINARY TRACT INFECTION [None]
  - VAGINAL HAEMORRHAGE [None]
